FAERS Safety Report 4503150-4 (Version None)
Quarter: 2004Q4

REPORT INFORMATION
  Report Type: 
  Country: None (occurrence: None)
  Receive Date: 20041116
  Receipt Date: 20041116
  Transmission Date: 20050328
  Serious: Yes (Hospitalization, Other)
  Sender: FDA-Public Use
  Company Number: None

PATIENT
  Age: 50 Year
  Sex: Male
  Weight: 88.4 kg

DRUGS (10)
  1. CISPLATIN [Suspect]
     Indication: SMALL CELL CARCINOMA
     Dosage: 100 MG/M2 Q 3 WEEKS IV
     Route: 042
     Dates: start: 20040927
  2. CISPLATIN [Suspect]
     Indication: SMALL CELL CARCINOMA
     Dosage: 100 MG/M2 Q 3 WEEKS IV
     Route: 042
     Dates: start: 20041025
  3. COMPAZINE [Concomitant]
  4. SENNA [Concomitant]
  5. SILVADENE [Concomitant]
  6. HYCODAN [Concomitant]
  7. DURAGESIC [Concomitant]
  8. OXYCODONE HCL [Concomitant]
  9. ZYPREXA [Concomitant]
  10. REMERON [Concomitant]

REACTIONS (7)
  - BODY TEMPERATURE INCREASED [None]
  - DIZZINESS [None]
  - HAEMOGLOBIN DECREASED [None]
  - HYPOVOLAEMIA [None]
  - MENTAL STATUS CHANGES [None]
  - NEUTROPHIL COUNT DECREASED [None]
  - PAIN EXACERBATED [None]
